FAERS Safety Report 22362077 (Version 19)
Quarter: 2024Q3

REPORT INFORMATION
  Report Type: Spontaneous
  Country: CA (occurrence: CA)
  Receive Date: 20230524
  Receipt Date: 20240816
  Transmission Date: 20241016
  Serious: Yes (Other)
  Sender: PFIZER
  Company Number: CA-PFIZER INC-202200750420

PATIENT
  Age: 47 Year
  Sex: Female
  Weight: 50 kg

DRUGS (27)
  1. TRAZIMERA [Suspect]
     Active Substance: TRASTUZUMAB-QYYP
     Indication: Breast cancer metastatic
     Dosage: EVERY 3 WEEKS X 12
     Route: 042
     Dates: start: 20220428
  2. TRAZIMERA [Suspect]
     Active Substance: TRASTUZUMAB-QYYP
     Dosage: EVERY 3 WEEKS X 12
     Route: 042
     Dates: start: 20220609
  3. TRAZIMERA [Suspect]
     Active Substance: TRASTUZUMAB-QYYP
     Dosage: CYCLE 23
     Route: 042
     Dates: start: 20220810
  4. TRAZIMERA [Suspect]
     Active Substance: TRASTUZUMAB-QYYP
     Dosage: CYCLE 24
     Route: 042
     Dates: start: 20220901
  5. TRAZIMERA [Suspect]
     Active Substance: TRASTUZUMAB-QYYP
     Dosage: CYCLE 25
     Route: 042
     Dates: start: 20220920
  6. TRAZIMERA [Suspect]
     Active Substance: TRASTUZUMAB-QYYP
     Dosage: CYCLE 26
     Route: 042
     Dates: start: 20221011
  7. TRAZIMERA [Suspect]
     Active Substance: TRASTUZUMAB-QYYP
     Dosage: EVERY 3 WEEKS X 12
     Route: 042
  8. TRAZIMERA [Suspect]
     Active Substance: TRASTUZUMAB-QYYP
     Dosage: EVERY 3 WEEKS X 12
     Route: 042
     Dates: start: 20230111
  9. TRAZIMERA [Suspect]
     Active Substance: TRASTUZUMAB-QYYP
     Dosage: 295 MG
     Route: 042
     Dates: start: 20230405
  10. TRAZIMERA [Suspect]
     Active Substance: TRASTUZUMAB-QYYP
     Dosage: 295 MG
     Route: 042
     Dates: start: 20230426
  11. TRAZIMERA [Suspect]
     Active Substance: TRASTUZUMAB-QYYP
     Dosage: 295 MG
     Route: 042
     Dates: start: 20230517
  12. TRAZIMERA [Suspect]
     Active Substance: TRASTUZUMAB-QYYP
     Dosage: 295 MG
     Route: 042
     Dates: start: 20230607
  13. TRAZIMERA [Suspect]
     Active Substance: TRASTUZUMAB-QYYP
     Dosage: 295 MG
     Route: 042
     Dates: start: 20230628
  14. TRAZIMERA [Suspect]
     Active Substance: TRASTUZUMAB-QYYP
     Dosage: 295 MG
     Route: 042
     Dates: start: 20230719
  15. TRAZIMERA [Suspect]
     Active Substance: TRASTUZUMAB-QYYP
     Dosage: 295 MG
     Route: 042
     Dates: start: 20230810
  16. TRAZIMERA [Suspect]
     Active Substance: TRASTUZUMAB-QYYP
     Dosage: 295 MG
     Route: 042
     Dates: start: 20230901
  17. TRAZIMERA [Suspect]
     Active Substance: TRASTUZUMAB-QYYP
     Dosage: 295 MG
     Route: 042
     Dates: start: 20230920
  18. TRAZIMERA [Suspect]
     Active Substance: TRASTUZUMAB-QYYP
     Dosage: 295 MG
     Route: 042
     Dates: start: 20231011
  19. TRAZIMERA [Suspect]
     Active Substance: TRASTUZUMAB-QYYP
     Dosage: 295 MG
     Route: 042
     Dates: start: 20231213
  20. TRAZIMERA [Suspect]
     Active Substance: TRASTUZUMAB-QYYP
     Dosage: 282 MG
     Route: 042
     Dates: start: 20240429
  21. TRAZIMERA [Suspect]
     Active Substance: TRASTUZUMAB-QYYP
     Dosage: 6 MG/KG (282 MG), EVERY 6 WEEKS
     Route: 042
     Dates: start: 20240521
  22. TRAZIMERA [Suspect]
     Active Substance: TRASTUZUMAB-QYYP
     Dosage: 6 MG/KG (280 MG), EVERY 6 WEEKS
     Route: 042
  23. TRAZIMERA [Suspect]
     Active Substance: TRASTUZUMAB-QYYP
     Dosage: 300 MG EVERY 6 WEEKS
     Route: 042
     Dates: start: 20240813
  24. HEPARIN [Concomitant]
     Active Substance: HEPARIN SODIUM
     Dosage: UNK 2.5 ML, 1004 ML
  25. PERJETA [Concomitant]
     Active Substance: PERTUZUMAB
     Dosage: UNK
     Dates: start: 20220609, end: 20220609
  26. PERJETA [Concomitant]
     Active Substance: PERTUZUMAB
     Dosage: UNK
     Dates: start: 20230405
  27. PERJETA [Concomitant]
     Active Substance: PERTUZUMAB
     Dosage: UNK
     Dates: start: 20230426

REACTIONS (12)
  - Weight increased [Unknown]
  - Hypotension [Unknown]
  - Poor venous access [Unknown]
  - Fatigue [Unknown]
  - Weight decreased [Unknown]
  - Asthenia [Unknown]
  - Blood pressure diastolic decreased [Not Recovered/Not Resolved]
  - Somnolence [Unknown]
  - Product dose omission issue [Unknown]
  - Inappropriate schedule of product administration [Unknown]
  - Off label use [Unknown]
  - Off label use [Unknown]

NARRATIVE: CASE EVENT DATE: 20220101
